FAERS Safety Report 4442890-2 (Version None)
Quarter: 2004Q3

REPORT INFORMATION
  Report Type: 
  Country: None (occurrence: None)
  Receive Date: 20040907
  Receipt Date: 20040907
  Transmission Date: 20050211
  Serious: No
  Sender: FDA-Public Use
  Company Number: None

PATIENT
  Age: 56 Year
  Sex: Male
  Weight: 61.2356 kg

DRUGS (1)
  1. MEPERIDINE HCL [Suspect]
     Dosage: 75 MG IM Q 6 H PRN
     Route: 030
     Dates: start: 20040211, end: 20040218

REACTIONS (3)
  - MUSCLE SPASMS [None]
  - NERVOUS SYSTEM DISORDER [None]
  - UROSEPSIS [None]
